FAERS Safety Report 4955246-0 (Version None)
Quarter: 2006Q1

REPORT INFORMATION
  Report Type: 
  Country: None (occurrence: None)
  Receive Date: 20060328
  Receipt Date: 20060322
  Transmission Date: 20060701
  Serious: Yes (Hospitalization)
  Sender: FDA-Public Use
  Company Number: PHEH2006US03795

PATIENT
  Age: 60 Year
  Sex: Female

DRUGS (1)
  1. CLOZARIL [Suspect]
     Route: 048

REACTIONS (4)
  - ASCITES [None]
  - CHOLECYSTECTOMY [None]
  - CHOLECYSTITIS [None]
  - HEPATIC ENZYME INCREASED [None]
